FAERS Safety Report 4492855-X (Version None)
Quarter: 2004Q4

REPORT INFORMATION
  Report Type: 
  Country: None (occurrence: None)
  Receive Date: 20041102
  Receipt Date: 20041021
  Transmission Date: 20050328
  Serious: Yes (Hospitalization)
  Sender: FDA-Public Use
  Company Number: HQWYE994522OCT04

PATIENT
  Age: 72 Year
  Sex: Male

DRUGS (17)
  1. CORDARONE [Suspect]
     Dosage: 200 MG 1 X PER 1 DAY, ORAL
     Route: 048
     Dates: start: 20010101, end: 20040913
  2. METHOTREXATE ^ROGER BELON^ (METHOTREXATE) [Suspect]
     Dosage: 5 MG 1 X PER 1 WK, ORAL
     Route: 048
     Dates: start: 20030715, end: 20040913
  3. TIAPRIDAL (TIAPRIDE) [Suspect]
     Indication: AGITATION
     Dosage: 100 MG 1 X PER 1 DAY
     Dates: start: 20040830, end: 20040902
  4. COVERSYL (PERINDOPRIL) [Concomitant]
  5. CORVASAL (MOLSIDOMINE) [Concomitant]
  6. KARGEGIC (ACETYLSALICYLATE  LYSINE) [Concomitant]
  7. LASIX [Concomitant]
  8. PREVISCAN (FLUINDIONE) [Concomitant]
  9. ACTONEL [Concomitant]
  10. STILNOX (ZOLPIDEM) [Concomitant]
  11. VALACYCLOVIR HCL [Concomitant]
  12. PYOSTACINE (PRISTINAMYCIN) [Concomitant]
  13. GANCICLOVIR SODIUM [Concomitant]
  14. TOBREX (TOBRAMYCIN SULFATE) [Concomitant]
  15. PREDNISONE [Concomitant]
  16. MOTILIUM [Concomitant]
  17. RAMIPRIL [Concomitant]

REACTIONS (6)
  - CARDIOPULMONARY FAILURE [None]
  - HEPATOCELLULAR DAMAGE [None]
  - LYMPHADENOPATHY [None]
  - PLEURAL EFFUSION [None]
  - POST PROCEDURAL COMPLICATION [None]
  - PULMONARY FIBROSIS [None]
